FAERS Safety Report 9505683 (Version 1)
Quarter: 2013Q1

REPORT INFORMATION
  Report Type: Spontaneous
  Country: US (occurrence: None)
  Receive Date: 20130220
  Receipt Date: 20130220
  Transmission Date: 20140127
  Serious: No
  Sender: FDA-Public Use
  Company Number: 1000040085

PATIENT
  Sex: Male

DRUGS (1)
  1. VIIBRYD [Suspect]
     Route: 048
     Dates: start: 2012, end: 2012

REACTIONS (2)
  - Contusion [None]
  - Back injury [None]
